FAERS Safety Report 9806632 (Version 1)
Quarter: 2014Q1

REPORT INFORMATION
  Report Type: Spontaneous
  Country: US (occurrence: US)
  Receive Date: 20140109
  Receipt Date: 20140109
  Transmission Date: 20141002
  Serious: Yes (Death, Other)
  Sender: FDA-Public Use
  Company Number: US-ABBVIE-13P-163-1102943-00

PATIENT
  Sex: 0

DRUGS (1)
  1. VICODIN [Suspect]
     Indication: ANALGESIC THERAPY

REACTIONS (2)
  - Respiratory depression [Fatal]
  - Intentional overdose [Not Recovered/Not Resolved]
